FAERS Safety Report 23238203 (Version 1)
Quarter: 2023Q4

REPORT INFORMATION
  Report Type: Report from Study
  Country: CO (occurrence: CO)
  Receive Date: 20231129
  Receipt Date: 20231129
  Transmission Date: 20240110
  Serious: Yes (Hospitalization)
  Sender: FDA-Public Use
  Company Number: CO-ABBVIE-5516515

PATIENT
  Age: 13 Year
  Sex: Male
  Weight: 30 kg

DRUGS (2)
  1. HUMIRA [Suspect]
     Active Substance: ADALIMUMAB
     Indication: Colitis ulcerative
     Dosage: FORM STRENGTH: 40MILLIGRAM
     Route: 058
     Dates: start: 20230824, end: 20231020
  2. HUMIRA [Suspect]
     Active Substance: ADALIMUMAB
     Dosage: FORM STRENGTH: 40MILLIGRAM
     Route: 058
     Dates: start: 20231111

REACTIONS (5)
  - Influenza [Recovered/Resolved]
  - Decreased appetite [Recovered/Resolved]
  - Hypersensitivity [Recovered/Resolved]
  - Lacrimation increased [Recovered/Resolved]
  - Amoebiasis [Recovered/Resolved]

NARRATIVE: CASE EVENT DATE: 20231101
